FAERS Safety Report 25844296 (Version 1)
Quarter: 2025Q3

REPORT INFORMATION
  Report Type: Spontaneous
  Country: US (occurrence: US)
  Receive Date: 20250925
  Receipt Date: 20250925
  Transmission Date: 20251020
  Serious: Yes (Other)
  Sender: ABBVIE
  Company Number: US-ABBVIE-6473785

PATIENT
  Age: 51 Year
  Sex: Male

DRUGS (3)
  1. HUMIRA [Suspect]
     Active Substance: ADALIMUMAB
     Indication: Ankylosing spondylitis
     Route: 058
     Dates: start: 202502
  2. HUMIRA [Suspect]
     Active Substance: ADALIMUMAB
     Route: 058
  3. HUMIRA [Suspect]
     Active Substance: ADALIMUMAB
     Route: 058
     Dates: start: 202202

REACTIONS (6)
  - Synovial cyst [Unknown]
  - Limb injury [Unknown]
  - Surgery [Unknown]
  - Endodontic procedure [Unknown]
  - Nerve block [Unknown]
  - Liquid product physical issue [Not Recovered/Not Resolved]

NARRATIVE: CASE EVENT DATE: 20220101
